FAERS Safety Report 5809859-4 (Version None)
Quarter: 2008Q3

REPORT INFORMATION
  Report Type: 
  Country: None (occurrence: None)
  Receive Date: 20080709
  Receipt Date: 20080625
  Transmission Date: 20090109
  Serious: Yes (Other)
  Sender: FDA-Public Use
  Company Number: 2008017203

PATIENT
  Sex: Female

DRUGS (2)
  1. NICORETTE [Suspect]
     Dosage: TRANSDERMAL
     Route: 062
  2. NICORETTE [Suspect]
     Dosage: ORAL
     Route: 048

REACTIONS (2)
  - BIOPSY THYROID GLAND [None]
  - TREATMENT NONCOMPLIANCE [None]
